FAERS Safety Report 24165339 (Version 7)
Quarter: 2024Q4

REPORT INFORMATION
  Report Type: Spontaneous
  Country: US (occurrence: US)
  Receive Date: 20240802
  Receipt Date: 20241110
  Transmission Date: 20250115
  Serious: Yes (Other)
  Sender: ABBVIE
  Company Number: US-ABBVIE-5860121

PATIENT
  Age: 77 Year
  Sex: Male
  Weight: 76 kg

DRUGS (8)
  1. VENETOCLAX [Suspect]
     Active Substance: VENETOCLAX
     Indication: Acute myeloid leukaemia
     Route: 048
     Dates: end: 20240708
  2. VENETOCLAX [Suspect]
     Active Substance: VENETOCLAX
     Indication: Acute myeloid leukaemia
     Dosage: FIRST ADMIN DATE: 2024
     Route: 048
     Dates: end: 202409
  3. VENETOCLAX [Suspect]
     Active Substance: VENETOCLAX
     Indication: Acute myeloid leukaemia
     Dosage: EVERY 6 WEEK CYCLE
     Route: 048
     Dates: start: 20241104
  4. AZACITIDINE [Suspect]
     Active Substance: AZACITIDINE
     Indication: Acute myeloid leukaemia
     Route: 065
     Dates: end: 20240708
  5. AZACITIDINE [Suspect]
     Active Substance: AZACITIDINE
     Indication: Acute myeloid leukaemia
     Dosage: FIRST ADMIN DATE: 2024
     Route: 065
     Dates: end: 202409
  6. AZACITIDINE [Suspect]
     Active Substance: AZACITIDINE
     Indication: Acute myeloid leukaemia
     Dosage: COMPLETED EVERY 6 WEEKS
     Route: 065
     Dates: start: 20241104
  7. MAPLIRPACEPT [Suspect]
     Active Substance: MAPLIRPACEPT
     Indication: Acute myeloid leukaemia
     Route: 042
     Dates: start: 20240625, end: 202409
  8. MAPLIRPACEPT [Suspect]
     Active Substance: MAPLIRPACEPT
     Indication: Acute myeloid leukaemia
     Route: 042
     Dates: start: 20241104

REACTIONS (3)
  - Neutropenia [Recovered/Resolved]
  - Neutropenia [Recovered/Resolved]
  - Neutropenia [Recovered/Resolved]

NARRATIVE: CASE EVENT DATE: 20240708
